FAERS Safety Report 5163427-9 (Version None)
Quarter: 2006Q4

REPORT INFORMATION
  Report Type: 
  Country: None (occurrence: None)
  Receive Date: 20061204
  Receipt Date: 20061121
  Transmission Date: 20070319
  Serious: Yes (Hospitalization)
  Sender: FDA-Public Use
  Company Number: PHHO2006US20367

PATIENT
  Age: 65 Year
  Sex: Female
  Weight: 69.387 kg

DRUGS (11)
  1. PROGRAF [Concomitant]
  2. PREDNISONE TAB [Concomitant]
  3. LABETALOL HCL [Concomitant]
  4. PRAVACHOL [Concomitant]
  5. XANAX [Concomitant]
  6. FERROUS SULFATE TAB [Concomitant]
  7. AMBIEN [Concomitant]
  8. NEXIUM [Concomitant]
  9. FOLIC ACID [Concomitant]
  10. BACTRIM [Concomitant]
  11. MYCOPHENOLIC ACID [Suspect]
     Indication: LUNG TRANSPLANT
     Dosage: 360 MG, BID
     Route: 048
     Dates: start: 20061018, end: 20061120

REACTIONS (3)
  - ABDOMINAL PAIN LOWER [None]
  - DIVERTICULAR PERFORATION [None]
  - DIVERTICULITIS [None]
